FAERS Safety Report 6917435-5 (Version None)
Quarter: 2010Q3

REPORT INFORMATION
  Report Type: 
  Country: None (occurrence: None)
  Receive Date: 20100810
  Receipt Date: 20100728
  Transmission Date: 20110219
  Serious: Yes (Hospitalization, Other)
  Sender: FDA-Public Use
  Company Number: PHHY2010TW47824

PATIENT
  Sex: Male
  Weight: 70 kg

DRUGS (1)
  1. ZOLEDRONATE T29581++BM [Suspect]
     Indication: METASTASES TO BONE
     Dosage: 3 MG, QMO
     Dates: start: 20090114

REACTIONS (3)
  - GASTRIC HAEMORRHAGE [None]
  - GASTRIC ULCER [None]
  - MELAENA [None]
